FAERS Safety Report 19390341 (Version 2)
Quarter: 2021Q2

REPORT INFORMATION
  Report Type: Spontaneous
  Country: US (occurrence: US)
  Receive Date: 20210608
  Receipt Date: 20210609
  Transmission Date: 20210717
  Serious: Yes (Other)
  Sender: FDA-Public Use
  Company Number: US-SA-2021SA179020

PATIENT
  Age: 76 Year
  Sex: Female

DRUGS (1)
  1. LANTUS SOLOSTAR [Suspect]
     Active Substance: INSULIN GLARGINE
     Indication: TYPE 2 DIABETES MELLITUS
     Dosage: 12 IU, QD
     Route: 065

REACTIONS (14)
  - Infection [Unknown]
  - Cataract [Unknown]
  - Malaise [Unknown]
  - Irritability [Unknown]
  - Spinal operation [Unknown]
  - Sarcoma [Unknown]
  - Nausea [Unknown]
  - Cardiac disorder [Unknown]
  - Cardiac operation [Unknown]
  - Blood glucose increased [Unknown]
  - Myocardial infarction [Unknown]
  - Diverticulitis [Unknown]
  - Eye disorder [Unknown]
  - Coronary artery bypass [Unknown]

NARRATIVE: CASE EVENT DATE: 20210408
